FAERS Safety Report 9837247 (Version 1)
Quarter: 2014Q1

REPORT INFORMATION
  Report Type: Spontaneous
  Country: JP (occurrence: JP)
  Receive Date: 20140123
  Receipt Date: 20140123
  Transmission Date: 20141002
  Serious: Yes (Death)
  Sender: FDA-Public Use
  Company Number: JP-PFIZER INC-2014019505

PATIENT
  Age: 74 Year
  Sex: Male

DRUGS (5)
  1. CAMPTO [Suspect]
     Indication: SQUAMOUS CELL CARCINOMA
     Dosage: UNK, ONCE A DAY, CYCLIC
     Route: 041
  2. 5-FU [Concomitant]
     Indication: SQUAMOUS CELL CARCINOMA
     Dosage: UNK, CYCLIC
     Route: 040
  3. 5-FU [Concomitant]
     Dosage: CONTINUOUS INFUSION, CYCLIC
     Route: 041
  4. ERBITUX [Concomitant]
     Indication: SQUAMOUS CELL CARCINOMA
     Dosage: 600 MG/BODY ON DAY1, CYCLIC
  5. ERBITUX [Concomitant]
     Dosage: 400MG/BODY ON DAY 22 AND 43, CYCLIC

REACTIONS (1)
  - Pneumonia [Fatal]
